FAERS Safety Report 23604932 (Version 1)
Quarter: 2024Q1

REPORT INFORMATION
  Report Type: Spontaneous
  Country: US (occurrence: US)
  Receive Date: 20240307
  Receipt Date: 20240307
  Transmission Date: 20240410
  Serious: No
  Sender: FDA-Public Use
  Company Number: US-IMMUNOGEN, INC.-US-IMGN-24-00116

PATIENT
  Age: 61 Year
  Sex: Female

DRUGS (2)
  1. ELAHERE [Suspect]
     Active Substance: MIRVETUXIMAB SORAVTANSINE-GYNX
     Indication: Ovarian cancer
     Dosage: 492 MILLIGRAM, UNK
     Route: 042
     Dates: start: 20220928, end: 20231120
  2. ELAHERE [Suspect]
     Active Substance: MIRVETUXIMAB SORAVTANSINE-GYNX
     Dosage: 382 MILLIGRAM, 3RD TREATMENT, UNK
     Route: 042
     Dates: start: 20231208

REACTIONS (2)
  - Treatment delayed [Recovered/Resolved]
  - Therapy change [Unknown]

NARRATIVE: CASE EVENT DATE: 20231120
